FAERS Safety Report 9225131 (Version 2)
Quarter: 2013Q2

REPORT INFORMATION
  Report Type: Spontaneous
  Country: CH (occurrence: CH)
  Receive Date: 20130411
  Receipt Date: 20130523
  Transmission Date: 20140414
  Serious: Yes (Other)
  Sender: FDA-Public Use
  Company Number: CH-JNJFOC-20130401467

PATIENT
  Age: 63 Year
  Sex: Female

DRUGS (3)
  1. INFLIXIMAB, RECOMBINANT [Suspect]
     Indication: FISTULA
     Route: 042
     Dates: start: 2004
  2. INFLIXIMAB, RECOMBINANT [Suspect]
     Indication: CROHN^S DISEASE
     Route: 042
     Dates: start: 2004
  3. AZATHIOPRINE [Suspect]
     Indication: CROHN^S DISEASE
     Route: 065
     Dates: start: 2004

REACTIONS (5)
  - Arthralgia [Unknown]
  - Groin pain [Unknown]
  - Pruritus generalised [Unknown]
  - Erythema [Unknown]
  - Drug ineffective [Unknown]
